FAERS Safety Report 16116140 (Version 1)
Quarter: 2019Q1

REPORT INFORMATION
  Report Type: Spontaneous
  Country: FR (occurrence: FR)
  Receive Date: 20190326
  Receipt Date: 20190326
  Transmission Date: 20190418
  Serious: Yes (Death)
  Sender: FDA-Public Use
  Company Number: FR-SA-2019SA077695

PATIENT
  Age: 62 Year
  Sex: Male
  Weight: 92 kg

DRUGS (3)
  1. ELIQUIS [Suspect]
     Active Substance: APIXABAN
     Indication: CEREBROVASCULAR ACCIDENT
     Dosage: UNK UNK, UNK
     Route: 048
     Dates: start: 20180626, end: 20180627
  2. LOVENOX [Suspect]
     Active Substance: ENOXAPARIN SODIUM
     Indication: CEREBROVASCULAR ACCIDENT
     Dosage: UNK UNK, UNK
     Route: 058
  3. KARDEGIC [Suspect]
     Active Substance: ASPIRIN DL-LYSINE
     Indication: CEREBROVASCULAR ACCIDENT
     Dosage: UNK UNK, UNK
     Route: 048

REACTIONS (3)
  - Intracranial haematoma [Fatal]
  - Generalised tonic-clonic seizure [Fatal]
  - Coma [Fatal]

NARRATIVE: CASE EVENT DATE: 20180627
